FAERS Safety Report 8553765 (Version 2)
Quarter: 2013Q2

REPORT INFORMATION
  Report Type: Report from Study
  Country: DE (occurrence: DE)
  Receive Date: 20120509
  Receipt Date: 20130416
  Transmission Date: 20140414
  Serious: Yes (Other)
  Sender: FDA-Public Use
  Company Number: DE-ROCHE-1067215

PATIENT
  Age: 72 Year
  Sex: Female

DRUGS (6)
  1. RITUXIMAB [Suspect]
     Indication: CHRONIC LYMPHOCYTIC LEUKAEMIA
     Route: 065
     Dates: start: 20110809, end: 20120123
  2. BENDAMUSTINE [Concomitant]
     Route: 065
     Dates: start: 20110809
  3. CYCLOPHOSPHAMIDE [Concomitant]
  4. DOXORUBICIN [Concomitant]
  5. VINCRISTINE [Concomitant]
  6. PREDNISOLONE [Concomitant]

REACTIONS (2)
  - Fall [Unknown]
  - Spinal fracture [Unknown]
